FAERS Safety Report 25735964 (Version 1)
Quarter: 2025Q3

REPORT INFORMATION
  Report Type: Report from Study
  Country: US (occurrence: US)
  Receive Date: 20250828
  Receipt Date: 20250828
  Transmission Date: 20251020
  Serious: Yes (Other)
  Sender: IDORSIA PHARMACEUTICALS
  Company Number: US-IDORSIA-011553-2025-US

PATIENT
  Sex: Male

DRUGS (4)
  1. TRYVIO [Suspect]
     Active Substance: APROCITENTAN
     Indication: Hypertension
     Dosage: 12.5 MG, QD
     Route: 048
     Dates: start: 20250131
  2. TRYVIO [Suspect]
     Active Substance: APROCITENTAN
     Dosage: 12.5 MG, QD
     Route: 048
  3. ALLOPURINOL [Concomitant]
     Active Substance: ALLOPURINOL
  4. ASPIRIN [Concomitant]
     Active Substance: ASPIRIN

REACTIONS (2)
  - Salivary gland cancer [Unknown]
  - Product dose omission issue [Unknown]
